FAERS Safety Report 7271894-X (Version None)
Quarter: 2011Q1

REPORT INFORMATION
  Report Type: 
  Country: None (occurrence: None)
  Receive Date: 20110126
  Receipt Date: 20110113
  Transmission Date: 20110831
  Serious: Yes (Other)
  Sender: FDA-Public Use
  Company Number: 2010-4482

PATIENT
  Sex: Male

DRUGS (10)
  1. ANTIHISTAMINES (ANTIHISTAMINES) [Concomitant]
  2. CLONAZEPAM [Concomitant]
  3. ADALAT [Concomitant]
  4. ANALGESICS (ANALGESICS) [Concomitant]
  5. SINEMET CR [Concomitant]
  6. ATORVASTATIN (ATORVASTATIN) [Concomitant]
  7. AMANTADINE HCL [Concomitant]
  8. APO-GO AMPOULES (APO-GO) (APOMORPHINE HYDROCHLORIDE) (APOMORPHINE HYDR [Suspect]
     Indication: PRODUCT USED FOR UNKNOWN INDICATION
     Dosage: 1.5 MG/H (24 HOUR INFUSIONS PLUS BOLUS
     Dates: start: 20100714
  9. APO-GO AMPOULES (APO-GO) (APOMORPHINE HYDROCHLORIDE) (APOMORPHINE HYDR [Suspect]
     Indication: PRODUCT USED FOR UNKNOWN INDICATION
     Dosage: 1.5 MG/H (24 HOUR INFUSIONS PLUS BOLUS
     Dates: start: 20101201
  10. SINEMET [Concomitant]

REACTIONS (3)
  - LOWER RESPIRATORY TRACT INFECTION [None]
  - HALLUCINATION, VISUAL [None]
  - AGGRESSION [None]
